FAERS Safety Report 7381849-2 (Version None)
Quarter: 2011Q1

REPORT INFORMATION
  Report Type: 
  Country: None (occurrence: None)
  Receive Date: 20110329
  Receipt Date: 20110321
  Transmission Date: 20110831
  Serious: Yes (Hospitalization, Other)
  Sender: FDA-Public Use
  Company Number: FR-PFIZER INC-2011062402

PATIENT
  Age: 73 Year
  Sex: Female

DRUGS (12)
  1. OMEPRAZOLE [Concomitant]
     Dosage: 20 MG, 1X/DAY
     Route: 048
     Dates: end: 20100615
  2. XANAX [Suspect]
     Dosage: 0.25 MG, 2X/DAY
     Route: 048
     Dates: start: 20100602, end: 20100610
  3. AMITRIPTYLINE HCL [Suspect]
     Dosage: 20 GTT, 1X/DAY
     Route: 048
  4. REQUIP [Concomitant]
     Dosage: 4 MG, 1X/DAY
  5. REQUIP [Concomitant]
     Indication: PARKINSON'S DISEASE
     Dosage: 8 MG, 2X/DAY
     Route: 048
  6. MANTADIX [Concomitant]
     Indication: PARKINSON'S DISEASE
     Dosage: 100 MG, 4X/DAY
     Route: 048
  7. DAFALGAN [Concomitant]
     Dosage: 1 G, 2X/DAY
     Route: 048
  8. VOLTAREN [Concomitant]
     Dosage: 100 MG, 1X/DAY
     Route: 048
     Dates: end: 20100615
  9. RIVOTRIL [Suspect]
     Dosage: 10 GTT, 1X/DAY
     Route: 048
     Dates: start: 20100602, end: 20100610
  10. SINEMET CR [Concomitant]
     Indication: PARKINSON'S DISEASE
     Dosage: 50 MG/200 MG -1 DF, 2X/DAY
     Route: 048
  11. SINEMET CR [Concomitant]
     Dosage: 25MG/100MG, 1 DF, 2X/DAY
  12. LEVOTHYROX [Concomitant]
     Indication: HYPOTHYROIDISM
     Dosage: 50 UG, 1X/DAY
     Route: 048

REACTIONS (11)
  - CEREBRAL VENTRICLE DILATATION [None]
  - AMNESIA [None]
  - DEPRESSED LEVEL OF CONSCIOUSNESS [None]
  - RALES [None]
  - RHABDOMYOLYSIS [None]
  - BACK PAIN [None]
  - OSTEOARTHRITIS [None]
  - ANXIETY [None]
  - MUSCULAR WEAKNESS [None]
  - URINARY INCONTINENCE [None]
  - FALL [None]
